FAERS Safety Report 17082585 (Version 1)
Quarter: 2019Q4

REPORT INFORMATION
  Report Type: Spontaneous
  Country: US (occurrence: US)
  Receive Date: 20191030
  Receipt Date: 20191030
  Transmission Date: 20200122
  Serious: Yes (Hospitalization)
  Sender: FDA-Public Use
  Company Number: None

PATIENT
  Age: 14 Year
  Sex: Female

DRUGS (10)
  1. MONTELUKAST [Concomitant]
     Active Substance: MONTELUKAST SODIUM
  2. ALBUTEROL 90 MCG [Suspect]
     Active Substance: ALBUTEROL
     Dosage: 2 PUFFS 2 TIMES DAILY EVEREY 4 HRS AS NEEDED
     Dates: start: 20190124
  3. CETIRIZINE [Concomitant]
     Active Substance: CETIRIZINE HYDROCHLORIDE
  4. CREON [Concomitant]
     Active Substance: PANCRELIPASE AMYLASE\PANCRELIPASE LIPASE\PANCRELIPASE PROTEASE
  5. PULMOZYME [Suspect]
     Active Substance: DORNASE ALFA
     Indication: CYSTIC FIBROSIS
     Dosage: ?          OTHER DOSE:25.MG/2.5ML;OTHER FREQUENCY:QD/2XAY WHEN ILL;OTHER ROUTE:OTHER?
     Dates: start: 20180818
  6. ALBUTEROL. [Concomitant]
     Active Substance: ALBUTEROL
  7. OMEPRAZOLE. [Concomitant]
     Active Substance: OMEPRAZOLE
  8. DULERA [Concomitant]
     Active Substance: FORMOTEROL FUMARATE DIHYDRATE\MOMETASONE FUROATE
  9. AMITIZA [Concomitant]
     Active Substance: LUBIPROSTONE
  10. AMOX/K CLAV [Concomitant]
     Active Substance: AMOXICILLIN\CLAVULANATE POTASSIUM

REACTIONS (1)
  - Pulmonary function test decreased [None]

NARRATIVE: CASE EVENT DATE: 20191023
